FAERS Safety Report 7916092-9 (Version None)
Quarter: 2011Q4

REPORT INFORMATION
  Report Type: 
  Country: None (occurrence: None)
  Receive Date: 20111116
  Receipt Date: 20111107
  Transmission Date: 20120403
  Serious: Yes (Hospitalization, Other)
  Sender: FDA-Public Use
  Company Number: US-BRISTOL-MYERS SQUIBB COMPANY-12176012

PATIENT
  Age: 37 Year
  Sex: Female
  Weight: 99 kg

DRUGS (11)
  1. WELLBUTRIN [Concomitant]
  2. CALCIUM CARBONATE [Concomitant]
  3. NEXIUM [Concomitant]
  4. LITHIUM CARBONATE [Concomitant]
     Dates: start: 20111022
  5. ABILIFY [Suspect]
     Indication: SCHIZOAFFECTIVE DISORDER
     Dosage: DOSE REDC TO 1/2 TAB EVERY OTHER DAY/ AND 1/2 TAB ON MOND + FRIDAYS.ALSO 2.5MG INCSD 5MG INCSD 10MG
     Route: 048
     Dates: start: 20030108, end: 20111001
  6. ZANTAC [Concomitant]
  7. ZOLOFT [Concomitant]
  8. CLOZARIL [Concomitant]
  9. LEVOXYL [Concomitant]
  10. ABILIFY [Suspect]
     Indication: BIPOLAR DISORDER
     Dosage: DOSE REDC TO 1/2 TAB EVERY OTHER DAY/ AND 1/2 TAB ON MOND + FRIDAYS.ALSO 2.5MG INCSD 5MG INCSD 10MG
     Route: 048
     Dates: start: 20030108, end: 20111001
  11. XANAX [Concomitant]

REACTIONS (18)
  - CHEST PAIN [None]
  - CONSTIPATION [None]
  - SUICIDAL IDEATION [None]
  - DIARRHOEA [None]
  - DYSPNOEA [None]
  - INSOMNIA [None]
  - VISUAL IMPAIRMENT [None]
  - FOOD INTOLERANCE [None]
  - THINKING ABNORMAL [None]
  - NAUSEA [None]
  - DIZZINESS [None]
  - MANIA [None]
  - WEIGHT DECREASED [None]
  - FATIGUE [None]
  - FALL [None]
  - BALANCE DISORDER [None]
  - ASTHENIA [None]
  - HYPOMANIA [None]
